FAERS Safety Report 8998193 (Version 1)
Quarter: 2013Q1

REPORT INFORMATION
  Report Type: Report from Study
  Country: CA (occurrence: CA)
  Receive Date: 20130104
  Receipt Date: 20130104
  Transmission Date: 20140127
  Serious: Yes (Hospitalization)
  Sender: FDA-Public Use
  Company Number: CA-US-EMD SERONO, INC.-7172671

PATIENT
  Age: 36 Year
  Sex: Female

DRUGS (4)
  1. REBIF [Suspect]
     Indication: RELAPSING-REMITTING MULTIPLE SCLEROSIS
     Route: 058
     Dates: start: 20121003
  2. CIPRALEX [Concomitant]
     Indication: PRODUCT USED FOR UNKNOWN INDICATION
  3. IMOVANE (ZOPICLONE) [Concomitant]
     Indication: PRODUCT USED FOR UNKNOWN INDICATION
  4. VITAMIN D [Concomitant]
     Indication: PRODUCT USED FOR UNKNOWN INDICATION

REACTIONS (7)
  - Multiple sclerosis relapse [Recovering/Resolving]
  - Alopecia [Unknown]
  - Amenorrhoea [Unknown]
  - Injection site haemorrhage [Unknown]
  - Injection site pain [Recovered/Resolved]
  - Injection site erythema [Unknown]
  - Injection site pruritus [Recovered/Resolved]
